FAERS Safety Report 12514789 (Version 1)
Quarter: 2016Q2

REPORT INFORMATION
  Report Type: Spontaneous
  Country: US (occurrence: None)
  Receive Date: 20160629
  Receipt Date: 20160629
  Transmission Date: 20160815
  Serious: No
  Sender: FDA-Public Use
  Company Number: None

PATIENT
  Age: 29 Year
  Sex: Male

DRUGS (6)
  1. VPA [Concomitant]
  2. RISPERIDONE. [Concomitant]
     Active Substance: RISPERIDONE
  3. GUANFACINE. [Suspect]
     Active Substance: GUANFACINE
     Indication: IMPULSIVE BEHAVIOUR
     Route: 048
     Dates: start: 20151123, end: 20151124
  4. QUETIAPINE. [Suspect]
     Active Substance: QUETIAPINE
     Indication: SCHIZOAFFECTIVE DISORDER
     Route: 048
  5. SIMVASTATIN. [Concomitant]
     Active Substance: SIMVASTATIN
  6. BENZTROPINE [Concomitant]
     Active Substance: BENZTROPINE

REACTIONS (2)
  - Therapy change [None]
  - Hypotension [None]

NARRATIVE: CASE EVENT DATE: 20151124
